FAERS Safety Report 4584214-6 (Version None)
Quarter: 2005Q1

REPORT INFORMATION
  Report Type: 
  Country: None (occurrence: None)
  Receive Date: 20050216
  Receipt Date: 20050210
  Transmission Date: 20050727
  Serious: Yes (Hospitalization)
  Sender: FDA-Public Use
  Company Number: FR-GLAXOSMITHKLINE-B0370839A

PATIENT
  Age: 25 Month
  Sex: Male
  Weight: 10.6 kg

DRUGS (2)
  1. VENTOLIN [Suspect]
     Indication: RESPIRATORY DISORDER
     Dosage: 2PUFF FOUR TIMES PER DAY
     Route: 055
     Dates: start: 20050113, end: 20050113
  2. CELESTENE [Concomitant]
     Indication: LARYNGITIS
     Dosage: 120DROP PER DAY
     Route: 048
     Dates: start: 20050111

REACTIONS (11)
  - ASTHENIA [None]
  - DYSPNOEA EXACERBATED [None]
  - INTERCOSTAL RETRACTION [None]
  - MOANING [None]
  - NASAL CONGESTION [None]
  - NASAL FLARING [None]
  - OXYGEN SATURATION DECREASED [None]
  - RESPIRATORY DISTRESS [None]
  - RESPIRATORY RATE INCREASED [None]
  - SUPRACLAVICULAR RETRACTION [None]
  - TACHYCARDIA [None]
